FAERS Safety Report 7294155-1 (Version None)
Quarter: 2011Q1

REPORT INFORMATION
  Report Type: 
  Country: None (occurrence: None)
  Receive Date: 20110215
  Receipt Date: 20110208
  Transmission Date: 20110831
  Serious: Yes (Life-Threatening, Hospitalization)
  Sender: FDA-Public Use
  Company Number: US-CELGENEUS-163-C5013-10071690

PATIENT
  Sex: Male
  Weight: 113.05 kg

DRUGS (59)
  1. VANCOMYCIN [Concomitant]
     Indication: PSEUDOMONAS INFECTION
     Route: 051
     Dates: start: 20100714, end: 20100714
  2. VANCOMYCIN [Concomitant]
  3. CIPRO [Concomitant]
     Indication: PSEUDOMONAS INFECTION
     Route: 065
     Dates: start: 20100101
  4. SODIUM CHLORIDE [Concomitant]
     Route: 051
     Dates: start: 20100714, end: 20100715
  5. PIPERACILLIN TAZOBACTAM [Concomitant]
     Indication: FEBRILE NEUTROPENIA
  6. LANTUS [Concomitant]
     Dosage: 30 UNITS
     Route: 058
     Dates: start: 20100714, end: 20100714
  7. PREDNISONE TAB [Suspect]
     Indication: PROSTATE CANCER
     Route: 065
     Dates: start: 20100518
  8. VANCOMYCIN [Concomitant]
     Indication: PROTEUS INFECTION
  9. MEPHYTON [Concomitant]
     Indication: THROMBOCYTOPENIA
     Route: 048
     Dates: start: 20100728, end: 20100728
  10. IMIPENEM AND CILASTATIN SODIUM [Concomitant]
     Route: 051
     Dates: start: 20100714, end: 20100719
  11. SODIUM CHLORIDE [Concomitant]
     Dosage: 75ML/HR
     Route: 051
     Dates: start: 20100717, end: 20100724
  12. ACETAMINOPHEN [Concomitant]
     Indication: PYREXIA
     Route: 048
     Dates: start: 20100714, end: 20100715
  13. FAT EMULSION [Concomitant]
     Route: 051
     Dates: start: 20100715, end: 20100716
  14. LANTUS [Concomitant]
     Indication: FEBRILE NEUTROPENIA
     Dosage: 30 UNITS
     Route: 058
     Dates: start: 20100716, end: 20100724
  15. DOCETAXEL [Suspect]
     Route: 065
     Dates: start: 20100707, end: 20100713
  16. PREDNISONE TAB [Suspect]
     Route: 065
     Dates: start: 20100707, end: 20100713
  17. WARFARIN [Concomitant]
     Indication: THROMBOSIS PROPHYLAXIS
     Route: 048
     Dates: start: 20061001
  18. MYCOSTATIN [Concomitant]
     Indication: RASH
     Route: 061
     Dates: start: 20100528
  19. POTASSIUM CHLORIDE [Concomitant]
     Route: 051
     Dates: start: 20100718, end: 20100718
  20. HYDROMORPHONE HCL [Concomitant]
     Route: 048
     Dates: start: 20100714, end: 20100724
  21. PIPERACILLIN TAZOBACTAM [Concomitant]
     Route: 051
     Dates: start: 20100719, end: 20100720
  22. LOTRIMIN [Concomitant]
     Indication: RASH
     Route: 061
     Dates: start: 20100526, end: 20100528
  23. PRIMAXIN [Concomitant]
     Indication: PROTEUS INFECTION
  24. LORTAB [Concomitant]
     Dosage: 5/500
     Route: 065
  25. GASTROGRAFIN [Concomitant]
     Indication: SCAN WITH CONTRAST
     Route: 048
     Dates: start: 20100722, end: 20100722
  26. DOCUSATE SODIUM [Concomitant]
     Indication: CONSTIPATION
     Route: 048
     Dates: start: 20100716, end: 20100724
  27. ISOSORBIDE MONONITRATE [Concomitant]
     Indication: CHEST PAIN
     Route: 048
     Dates: start: 20100714, end: 20100714
  28. FAMOTIDINE [Concomitant]
     Route: 051
     Dates: start: 20100715, end: 20100724
  29. DOCETAXEL [Suspect]
     Indication: PROSTATE CANCER
     Route: 065
     Dates: start: 20100518
  30. AMLODIPINE [Concomitant]
     Indication: HYPERTENSION
     Route: 048
     Dates: start: 19900101
  31. IMDUR [Concomitant]
     Route: 048
  32. WARFARIN [Concomitant]
     Route: 065
  33. VANCOMYCIN [Concomitant]
     Indication: FEBRILE NEUTROPENIA
  34. PRIMAXIN [Concomitant]
     Indication: PSEUDOMONAS INFECTION
     Route: 065
     Dates: start: 20100101
  35. NEULASTA [Concomitant]
     Route: 065
  36. CC-5013\PLACEBO [Suspect]
     Indication: PROSTATE CANCER
     Route: 048
     Dates: start: 20100518
  37. DEMADEX [Concomitant]
     Indication: HYPERTENSION
     Route: 065
     Dates: start: 19900101
  38. DEMADEX [Concomitant]
  39. LUPRON [Concomitant]
     Indication: HORMONE SUPPRESSION THERAPY
     Route: 030
     Dates: start: 20090201
  40. PRAVASTATIN [Concomitant]
     Route: 048
     Dates: start: 20100716, end: 20100723
  41. POTASSIUM CHLORIDE [Concomitant]
     Route: 048
     Dates: start: 20100718, end: 20100724
  42. KETOROLAC [Concomitant]
     Indication: PAIN
     Route: 051
     Dates: start: 20100715, end: 20100716
  43. HYDROMORPHONE HCL [Concomitant]
     Indication: PAIN
     Route: 048
     Dates: start: 20100714, end: 20100714
  44. FUROSEMIDE [Concomitant]
     Route: 051
     Dates: start: 20100715, end: 20100715
  45. ADULT TPN [Concomitant]
     Dosage: 50ML/HR
     Route: 051
     Dates: start: 20100714, end: 20100715
  46. CC-5013\PLACEBO [Suspect]
     Route: 048
     Dates: start: 20100707, end: 20100713
  47. DIFLUCAN [Concomitant]
     Indication: RASH
     Route: 048
     Dates: start: 20100528
  48. ATENOLOL [Concomitant]
     Indication: HYPERTENSION
     Route: 048
     Dates: start: 19900101
  49. ASPIRIN [Concomitant]
     Indication: THROMBOSIS PROPHYLAXIS
     Route: 048
     Dates: start: 19900101
  50. HUMALOG [Concomitant]
     Dosage: SLIDING SCALE
     Route: 058
     Dates: start: 20080801
  51. IMDUR [Concomitant]
     Indication: HYPERTENSION
     Route: 048
     Dates: start: 19900101
  52. CIPRO [Concomitant]
     Indication: PROTEUS INFECTION
  53. IMIPENEM AND CILASTATIN SODIUM [Concomitant]
     Indication: FEBRILE NEUTROPENIA
  54. SODIUM CHLORIDE [Concomitant]
     Route: 051
     Dates: start: 20100714, end: 20100718
  55. LANTUS [Concomitant]
     Route: 058
     Dates: start: 20080801
  56. FLOMAX [Concomitant]
     Route: 048
     Dates: start: 20020201
  57. ARANESP [Concomitant]
     Route: 058
     Dates: start: 20100720, end: 20100720
  58. ENOXAPARIN SODIUM [Concomitant]
     Route: 058
     Dates: start: 20100717, end: 20100719
  59. HYDROCODONE [Concomitant]
     Indication: PAIN
     Dosage: 7.5/500MG
     Route: 048
     Dates: start: 20100717, end: 20100724

REACTIONS (3)
  - PERITONITIS [None]
  - FEBRILE NEUTROPENIA [None]
  - GASTROINTESTINAL PERFORATION [None]
